FAERS Safety Report 4435887-X (Version None)
Quarter: 2004Q3

REPORT INFORMATION
  Report Type: 
  Country: None (occurrence: None)
  Receive Date: 20040726
  Receipt Date: 20040303
  Transmission Date: 20050211
  Serious: No
  Sender: FDA-Public Use
  Company Number: USA040360702

PATIENT
  Age: 84 Year
  Sex: Female
  Weight: 62 kg

DRUGS (5)
  1. FORTEO [Suspect]
     Indication: OSTEOPOROSIS
     Dates: start: 20040226
  2. SYNTHROID [Concomitant]
  3. UNIRETIC [Concomitant]
  4. ACIPHEX [Concomitant]
  5. LIPITOR [Concomitant]

REACTIONS (2)
  - DIFFICULTY IN WALKING [None]
  - PAIN IN EXTREMITY [None]
